FAERS Safety Report 7896647-0 (Version None)
Quarter: 2011Q4

REPORT INFORMATION
  Report Type: 
  Country: None (occurrence: None)
  Receive Date: 20111107
  Receipt Date: 20111027
  Transmission Date: 20120403
  Serious: No
  Sender: FDA-Public Use
  Company Number: US-BIOGENIDEC-2011BI015194

PATIENT
  Sex: Female

DRUGS (2)
  1. TYSABRI [Suspect]
     Indication: MULTIPLE SCLEROSIS
     Route: 042
     Dates: start: 20100409, end: 20110811
  2. AMPYRA [Concomitant]
     Indication: PRODUCT USED FOR UNKNOWN INDICATION

REACTIONS (9)
  - BALANCE DISORDER [None]
  - PAIN IN EXTREMITY [None]
  - PERIPHERAL COLDNESS [None]
  - LOSS OF CONTROL OF LEGS [None]
  - NIGHT SWEATS [None]
  - CHEST PAIN [None]
  - FEELING HOT [None]
  - MULTIPLE SCLEROSIS RELAPSE [None]
  - BURNING SENSATION [None]
